FAERS Safety Report 11449550 (Version 1)
Quarter: 2015Q3

REPORT INFORMATION
  Report Type: Report from Study
  Country: AT (occurrence: AT)
  Receive Date: 20150903
  Receipt Date: 20150903
  Transmission Date: 20151125
  Serious: Yes (Death, Life-Threatening, Other)
  Sender: FDA-Public Use
  Company Number: AT-ROCHE-1628284

PATIENT

DRUGS (3)
  1. BENDAMUSTINE [Suspect]
     Active Substance: BENDAMUSTINE
     Indication: CHRONIC LYMPHOCYTIC LEUKAEMIA
     Route: 065
  2. BENDAMUSTINE [Suspect]
     Active Substance: BENDAMUSTINE
     Route: 065
  3. RITUXIMAB [Suspect]
     Active Substance: RITUXIMAB
     Indication: CHRONIC LYMPHOCYTIC LEUKAEMIA
     Route: 042

REACTIONS (15)
  - Gastric cancer [Unknown]
  - Anaemia [Unknown]
  - Malignant melanoma [Unknown]
  - Febrile neutropenia [Unknown]
  - Leukopenia [Unknown]
  - Interstitial lung disease [Unknown]
  - Skin toxicity [Unknown]
  - Neutropenia [Unknown]
  - Nausea [Unknown]
  - Infection [Fatal]
  - Myelodysplastic syndrome [Unknown]
  - Thrombocytopenia [Unknown]
  - Rectal cancer [Unknown]
  - Malignant peritoneal neoplasm [Unknown]
  - Organising pneumonia [Unknown]
